FAERS Safety Report 21129943 (Version 1)
Quarter: 2022Q3

REPORT INFORMATION
  Report Type: Spontaneous
  Country: US (occurrence: US)
  Receive Date: 20220726
  Receipt Date: 20220726
  Transmission Date: 20221026
  Serious: Yes (Hospitalization)
  Sender: FDA-Public Use
  Company Number: US-BRISTOL-MYERS SQUIBB COMPANY-2022-075694

PATIENT
  Age: 69 Year
  Sex: Female
  Weight: 59.4 kg

DRUGS (1)
  1. REVLIMID [Suspect]
     Active Substance: LENALIDOMIDE
     Indication: Plasma cell myeloma
     Dosage: DAILY X 28 DAYS
     Route: 048
     Dates: start: 20220319

REACTIONS (7)
  - Product dose omission issue [Unknown]
  - Headache [Recovering/Resolving]
  - Panic attack [Recovering/Resolving]
  - Fatigue [Recovering/Resolving]
  - Fall [Recovering/Resolving]
  - Bacterial infection [Recovering/Resolving]
  - Weight decreased [Recovering/Resolving]
